FAERS Safety Report 4709637-3 (Version None)
Quarter: 2005Q3

REPORT INFORMATION
  Report Type: 
  Country: None (occurrence: None)
  Receive Date: 20050707
  Receipt Date: 20050623
  Transmission Date: 20060218
  Serious: Yes (Hospitalization, Other)
  Sender: FDA-Public Use
  Company Number: 2005-0008436

PATIENT
  Age: 50 Year

DRUGS (2)
  1. TRUVADA [Suspect]
     Indication: HEPATITIS C VIRUS
     Dosage: 1 IN 1 D, ORAL
     Route: 048
     Dates: start: 20040101, end: 20050505
  2. KALETRA [Suspect]
     Indication: HIV INFECTION
     Dosage: 3 DOSAGE FORMS, 2 IN 1 1 D, ORAL
     Route: 048
     Dates: start: 20010101

REACTIONS (2)
  - DRUG INTERACTION [None]
  - RENAL FAILURE ACUTE [None]
